FAERS Safety Report 12617871 (Version 3)
Quarter: 2016Q4

REPORT INFORMATION
  Report Type: Spontaneous
  Country: US (occurrence: US)
  Receive Date: 20160803
  Receipt Date: 20161129
  Transmission Date: 20170207
  Serious: No
  Sender: FDA-Public Use
  Company Number: US-PFIZER INC-2016368939

PATIENT
  Age: 46 Year
  Sex: Female
  Weight: 58.96 kg

DRUGS (4)
  1. XELJANZ [Suspect]
     Active Substance: TOFACITINIB CITRATE
     Indication: RHEUMATOID ARTHRITIS
     Dosage: 5 MG, 2X/DAY
     Route: 048
     Dates: start: 20160514, end: 2016
  2. TRIVORA-28 [Concomitant]
     Dosage: UNK
  3. XELJANZ [Suspect]
     Active Substance: TOFACITINIB CITRATE
     Dosage: 5 MG, 2X/DAY
     Route: 048
     Dates: start: 20160702
  4. XELJANZ [Suspect]
     Active Substance: TOFACITINIB CITRATE
     Dosage: 5 MG, 2X/DAY
     Route: 048
     Dates: start: 20160715

REACTIONS (3)
  - Fungal infection [Recovering/Resolving]
  - Upper respiratory tract infection [Unknown]
  - Sinusitis [Unknown]

NARRATIVE: CASE EVENT DATE: 20161031
